FAERS Safety Report 12059063 (Version 1)
Quarter: 2016Q1

REPORT INFORMATION
  Report Type: Spontaneous
  Country: JP (occurrence: JP)
  Receive Date: 20160210
  Receipt Date: 20160210
  Transmission Date: 20160526
  Serious: Yes (Hospitalization, Other)
  Sender: FDA-Public Use
  Company Number: JP-PAR PHARMACEUTICAL COMPANIES-2016SCPR015158

PATIENT

DRUGS (5)
  1. LITHIUM CARBONATE. [Suspect]
     Active Substance: LITHIUM CARBONATE
     Indication: AFFECTIVE DISORDER
     Dosage: 600 MG, / DAY
     Route: 065
  2. LITHIUM CARBONATE. [Suspect]
     Active Substance: LITHIUM CARBONATE
     Indication: DEPRESSION
  3. IMIPRAMINE [Suspect]
     Active Substance: IMIPRAMINE
     Indication: AFFECTIVE DISORDER
     Dosage: 100 MG, / DAY
     Route: 065
  4. IMIPRAMINE [Suspect]
     Active Substance: IMIPRAMINE
     Indication: DEPRESSION
     Dosage: 175 MG, / DAY
     Route: 065
  5. METOCLOPRAMIDE. [Suspect]
     Active Substance: METOCLOPRAMIDE
     Indication: NAUSEA
     Dosage: 25 MG, / DAY
     Route: 042

REACTIONS (4)
  - Serotonin syndrome [Recovering/Resolving]
  - Neuroleptic malignant syndrome [Recovering/Resolving]
  - Depression [Unknown]
  - Condition aggravated [Unknown]
